FAERS Safety Report 9817857 (Version 1)
Quarter: 2014Q1

REPORT INFORMATION
  Report Type: Spontaneous
  Country: US (occurrence: None)
  Receive Date: 20140110
  Receipt Date: 20140110
  Transmission Date: 20141002
  Serious: Yes (Hospitalization)
  Sender: FDA-Public Use
  Company Number: None

PATIENT
  Age: 76 Year
  Sex: Female
  Weight: 75.8 kg

DRUGS (3)
  1. AROMASIN [Suspect]
     Indication: INTRADUCTAL PROLIFERATIVE BREAST LESION
     Dates: start: 20110101, end: 20131121
  2. VITAMIN D [Concomitant]
  3. ALENDRONATE [Concomitant]

REACTIONS (1)
  - Cerebrovascular accident [None]
